FAERS Safety Report 9438806 (Version 1)
Quarter: 2013Q3

REPORT INFORMATION
  Report Type: Spontaneous
  Country: US (occurrence: US)
  Receive Date: 20130802
  Receipt Date: 20130802
  Transmission Date: 20140515
  Serious: No
  Sender: FDA-Public Use
  Company Number: US-PFIZER INC-2013225866

PATIENT
  Age: 53 Year
  Sex: Female

DRUGS (1)
  1. PRISTIQ [Suspect]
     Indication: ANTIDEPRESSANT THERAPY
     Dosage: 50 MG, 1X/DAY
     Route: 048
     Dates: start: 201208

REACTIONS (2)
  - Restless legs syndrome [Not Recovered/Not Resolved]
  - Bruxism [Not Recovered/Not Resolved]
